FAERS Safety Report 9773398 (Version 2)
Quarter: 2013Q4

REPORT INFORMATION
  Report Type: Report from Study
  Country: US (occurrence: US)
  Receive Date: 20131219
  Receipt Date: 20131219
  Transmission Date: 20140711
  Serious: Yes (Other)
  Sender: FDA-Public Use
  Company Number: PHEH2013US023717

PATIENT
  Age: 45 Year
  Sex: Female
  Weight: 110.2 kg

DRUGS (4)
  1. GILENYA [Suspect]
     Indication: MULTIPLE SCLEROSIS
     Dosage: 0.5 MG, QD
     Route: 048
     Dates: start: 20131105, end: 20131105
  2. FIORICET [Concomitant]
     Indication: HEADACHE
     Route: 048
  3. SUMATRIPTAN [Concomitant]
     Indication: HEADACHE
     Dosage: 100 MG, PRN
     Route: 048
  4. TOPIRAMATE [Concomitant]
     Indication: HEADACHE
     Dosage: 25 MG, BID
     Route: 048

REACTIONS (3)
  - Hypersensitivity [Recovered/Resolved]
  - Pruritus [Recovered/Resolved]
  - Flushing [Recovered/Resolved]
